FAERS Safety Report 25457136 (Version 4)
Quarter: 2025Q4

REPORT INFORMATION
  Report Type: Spontaneous
  Country: US (occurrence: US)
  Receive Date: 20250619
  Receipt Date: 20251118
  Transmission Date: 20260118
  Serious: No
  Sender: SANOFI AVENTIS
  Company Number: US-SA-2025SA173964

PATIENT
  Age: 4 Year
  Sex: Male

DRUGS (2)
  1. DUPIXENT [Suspect]
     Active Substance: DUPILUMAB
     Indication: Dermatitis atopic
     Dosage: 300 MG, Q4W
     Route: 058
     Dates: start: 202502, end: 2025
  2. DUPIXENT [Suspect]
     Active Substance: DUPILUMAB
     Indication: Asthma
     Dosage: 300 MG, Q4W
     Route: 058
     Dates: start: 2025

REACTIONS (13)
  - Cough [Unknown]
  - Rebound atopic dermatitis [Unknown]
  - Asthma [Recovered/Resolved]
  - Rebound effect [Unknown]
  - Pruritus allergic [Recovered/Resolved]
  - Dyspnoea [Recovered/Resolved]
  - Dermatitis atopic [Unknown]
  - Skin discolouration [Not Recovered/Not Resolved]
  - Sleep disorder due to a general medical condition [Unknown]
  - Scratch [Unknown]
  - Pruritus [Unknown]
  - Asthma [Unknown]
  - Dry eye [Not Recovered/Not Resolved]

NARRATIVE: CASE EVENT DATE: 20250101
